FAERS Safety Report 26120233 (Version 2)
Quarter: 2025Q4

REPORT INFORMATION
  Report Type: Spontaneous
  Country: EU (occurrence: EU)
  Receive Date: 20251204
  Receipt Date: 20251210
  Transmission Date: 20260117
  Serious: Yes (Hospitalization, Other)
  Sender: MERCK SHARP & DOHME LLC
  Company Number: EU-009507513-2354084

PATIENT
  Age: 86 Year
  Sex: Male

DRUGS (4)
  1. BELZUTIFAN [Suspect]
     Active Substance: BELZUTIFAN
     Indication: Metastatic renal cell carcinoma
     Dosage: 120 MG
     Route: 048
     Dates: start: 20251111, end: 20251115
  2. ASPIRIN [Concomitant]
     Active Substance: ASPIRIN
     Dosage: 100 MG, 1-0-0
  3. CANDESARTAN [Concomitant]
     Active Substance: CANDESARTAN
     Dosage: 8 MG, 1-0-1
  4. AMLODIPINE BESYLATE [Concomitant]
     Active Substance: AMLODIPINE BESYLATE
     Dosage: 5 MG, 1-0-1

REACTIONS (2)
  - Amaurosis fugax [Recovered/Resolved]
  - Carotid artery stenosis [Unknown]

NARRATIVE: CASE EVENT DATE: 20251115
